FAERS Safety Report 6112077-6 (Version None)
Quarter: 2009Q1

REPORT INFORMATION
  Report Type: 
  Country: None (occurrence: None)
  Receive Date: 20090311
  Receipt Date: 20090227
  Transmission Date: 20090719
  Serious: Yes (Death)
  Sender: FDA-Public Use
  Company Number: JP-PFIZER INC-2009177916

PATIENT

DRUGS (8)
  1. SUNITINIB MALATE [Suspect]
     Indication: RENAL CELL CARCINOMA
     Dosage: 50 MG, 1X/DAY
     Route: 048
     Dates: start: 20080704
  2. BISOLVON [Concomitant]
     Route: 048
  3. MUCODYNE [Concomitant]
     Route: 048
  4. DECADRON [Concomitant]
     Route: 048
  5. LAC B [Concomitant]
     Route: 048
  6. OMEPRAL [Concomitant]
     Route: 048
  7. CODEINE PHOSPHATE [Concomitant]
     Route: 048
  8. FERROMIA [Concomitant]
     Route: 048

REACTIONS (1)
  - DISSEMINATED INTRAVASCULAR COAGULATION [None]
